FAERS Safety Report 10653135 (Version 4)
Quarter: 2015Q3

REPORT INFORMATION
  Report Type: Spontaneous
  Country: US (occurrence: US)
  Receive Date: 20141215
  Receipt Date: 20150709
  Transmission Date: 20151125
  Serious: Yes (Other)
  Sender: FDA-Public Use
  Company Number: US-GLAXOSMITHKLINE-US2014GSK035376

PATIENT
  Sex: Female

DRUGS (1)
  1. VENTOLIN HFA [Suspect]
     Active Substance: ALBUTEROL SULFATE
     Indication: DYSPNOEA
     Dosage: 2 PUFF(S), PRN
     Route: 055

REACTIONS (4)
  - Hypersensitivity [Unknown]
  - Product quality issue [Unknown]
  - Medication error [Unknown]
  - Deafness [Unknown]

NARRATIVE: CASE EVENT DATE: 20141212
